FAERS Safety Report 18898157 (Version 1)
Quarter: 2021Q1

REPORT INFORMATION
  Report Type: Spontaneous
  Country: US (occurrence: US)
  Receive Date: 20210213
  Receipt Date: 20210213
  Transmission Date: 20210420
  Serious: Yes (Hospitalization)
  Sender: FDA-Public Use
  Company Number: None

PATIENT
  Sex: Male
  Weight: 80.74 kg

DRUGS (2)
  1. TEMOZOLOMIDE 5 MG [Suspect]
     Active Substance: TEMOZOLOMIDE
  2. TEMOZOLOMIDE 140 MG [Suspect]
     Active Substance: TEMOZOLOMIDE
     Indication: BRAIN NEOPLASM MALIGNANT
     Route: 048
     Dates: start: 20210101

REACTIONS (1)
  - Deep vein thrombosis [None]
